FAERS Safety Report 6059100-5 (Version None)
Quarter: 2009Q1

REPORT INFORMATION
  Report Type: 
  Country: None (occurrence: None)
  Receive Date: 20090130
  Receipt Date: 20090120
  Transmission Date: 20090719
  Serious: Yes (Hospitalization, Other)
  Sender: FDA-Public Use
  Company Number: US-PFIZER INC-2009160668

PATIENT
  Sex: Female
  Weight: 98.413 kg

DRUGS (14)
  1. CHANTIX [Suspect]
     Indication: SMOKING CESSATION THERAPY
     Dates: start: 20070101, end: 20070101
  2. SEREVENT [Concomitant]
     Dosage: UNK
  3. ADVAIR DISKUS 100/50 [Concomitant]
     Dosage: UNK
  4. SINGULAIR ^DIECKMANN^ [Concomitant]
     Dosage: UNK
  5. LOVASTATIN [Concomitant]
     Dosage: UNK
  6. ACETYLSALICYLIC ACID [Concomitant]
     Dosage: UNK
  7. OXYGEN [Concomitant]
     Dosage: UNK
  8. DUONEB [Concomitant]
     Dosage: UNK
  9. OXYCODONE HCL [Concomitant]
     Dosage: UNK
  10. XANAX [Concomitant]
     Dosage: UNK
  11. FIBRE, DIETARY [Concomitant]
     Dosage: UNK
  12. STOOL SOFTENER [Concomitant]
     Dosage: UNK
  13. CENTRUM SILVER [Concomitant]
     Dosage: UNK
  14. QUINAPRIL HYDROCHLORIDE [Concomitant]

REACTIONS (2)
  - CHRONIC OBSTRUCTIVE PULMONARY DISEASE [None]
  - CONVULSION [None]
